FAERS Safety Report 13152516 (Version 2)
Quarter: 2024Q2

REPORT INFORMATION
  Report Type: Spontaneous
  Country: US (occurrence: US)
  Receive Date: 20170125
  Receipt Date: 20240530
  Transmission Date: 20240715
  Serious: No
  Sender: FDA-Public Use
  Company Number: US-BIOGEN-2017BI00346228

PATIENT
  Age: 46 Year
  Sex: Female

DRUGS (6)
  1. PLEGRIDY [Suspect]
     Active Substance: PEGINTERFERON BETA-1A
     Indication: Multiple sclerosis
     Dosage: 125 MCG/0.5ML
     Route: 050
     Dates: start: 20170107
  2. BACLOFEN [Concomitant]
     Active Substance: BACLOFEN
     Route: 050
     Dates: start: 20161102
  3. LEVOTHYROXINE SODIUM [Concomitant]
     Active Substance: LEVOTHYROXINE SODIUM
     Route: 050
     Dates: start: 20190425
  4. METHYLPHENIDATE HYDROCHLORIDE [Concomitant]
     Active Substance: METHYLPHENIDATE HYDROCHLORIDE
     Route: 050
     Dates: start: 20180523
  5. VITAMIN D [Concomitant]
     Active Substance: VITAMIN D NOS
     Dosage: 2 CAPSULES DAILY?50 MCG (2000 UT)
     Route: 050
     Dates: start: 20161102
  6. OMEPRAZOLE [Concomitant]
     Active Substance: DONEPEZIL HYDROCHLORIDE\OMEPRAZOLE\OMEPRAZOLE MAGNESIUM
     Dosage: 1 CAPSULE BY MOUTH EVERY MORNING 30 MINUTES BEFORE BREAKFAST
     Route: 050

REACTIONS (2)
  - Fatigue [Unknown]
  - Injection site erythema [Not Recovered/Not Resolved]

NARRATIVE: CASE EVENT DATE: 20170107
